FAERS Safety Report 8494471 (Version 7)
Quarter: 2013Q1

REPORT INFORMATION
  Report Type: Report from Study
  Country: CA (occurrence: CA)
  Receive Date: 20120404
  Receipt Date: 20130107
  Transmission Date: 20140127
  Serious: Yes (Hospitalization)
  Sender: FDA-Public Use
  Company Number: CA-AMGEN-CANCT2012020982

PATIENT
  Age: 67 Year
  Sex: Male

DRUGS (12)
  1. DENOSUMAB [Suspect]
     Indication: PROSTATE CANCER
     Dosage: 2.0 ML, QMO
     Route: 058
     Dates: start: 20110113
  2. CALCIUM [Concomitant]
     Dosage: 1 G, UNK
     Route: 048
     Dates: start: 2005
  3. HYZAAR [Concomitant]
     Indication: HYPERTENSION
     Dosage: UNK UNK, QD
     Route: 048
     Dates: start: 20070209
  4. TYLENOL [Concomitant]
     Indication: ARTHRALGIA
     Dosage: UNK UNK, PRN
     Route: 048
     Dates: start: 20110115
  5. ASPIRIN [Concomitant]
     Dosage: 81 MG, QD
     Route: 048
     Dates: start: 20120214, end: 20120323
  6. CRESTOR [Concomitant]
     Dosage: 5 MG, QD
     Route: 048
     Dates: start: 20120214
  7. CELEXIN [Concomitant]
     Dosage: UNK UNK, QD
     Route: 048
     Dates: start: 1993
  8. VITAMIN D [Concomitant]
     Dosage: 200 IU, QD
     Route: 048
     Dates: start: 2005
  9. ADVIL [Concomitant]
     Dosage: UNK UNK, BID
     Route: 048
     Dates: start: 20110115
  10. ZOLADEX [Concomitant]
     Dosage: UNK
  11. ATENOLOL [Concomitant]
     Dosage: UNK
  12. PANTOLOC [Concomitant]
     Dosage: 40 MG, QD

REACTIONS (1)
  - Atypical femur fracture [Recovered/Resolved]
